FAERS Safety Report 17575741 (Version 3)
Quarter: 2020Q4

REPORT INFORMATION
  Report Type: Spontaneous
  Country: JP (occurrence: JP)
  Receive Date: 20200324
  Receipt Date: 20201028
  Transmission Date: 20210113
  Serious: Yes (Other)
  Sender: FDA-Public Use
  Company Number: JP-PFIZER INC-2020123598

PATIENT
  Age: 82 Year
  Sex: Female

DRUGS (6)
  1. LIPITOR [Suspect]
     Active Substance: ATORVASTATIN CALCIUM
     Dosage: 10 MG, 1X/DAY
     Route: 048
  2. CINAL [Concomitant]
     Dosage: UNK
     Route: 048
  3. BAYASPIRIN [Concomitant]
     Active Substance: ASPIRIN
     Dosage: 100 MG/DAY, UNKNOWN FREQ
     Route: 048
  4. VOLTAREN ACTI [Concomitant]
     Active Substance: DICLOFENAC POTASSIUM
     Dosage: 25 MG/DAY, UNKNOWN FREQ.
     Route: 054
  5. EVENITY [Suspect]
     Active Substance: ROMOSOZUMAB-AQQG
     Dosage: 210 MG/DAY, UNKNOWN FREQ.
     Route: 058
     Dates: start: 20200304, end: 202003
  6. EDIROL [Concomitant]
     Active Substance: ELDECALCITOL
     Dosage: 0.5 UG/DAY, UNKNOWN FREQ.
     Route: 048

REACTIONS (2)
  - Altered state of consciousness [Recovered/Resolved]
  - Dizziness [Recovered/Resolved]

NARRATIVE: CASE EVENT DATE: 20200308
